FAERS Safety Report 9832493 (Version 1)
Quarter: 2014Q1

REPORT INFORMATION
  Report Type: Spontaneous
  Country: TR (occurrence: TR)
  Receive Date: 20140121
  Receipt Date: 20140121
  Transmission Date: 20141002
  Serious: Yes (Life-Threatening)
  Sender: FDA-Public Use
  Company Number: TR-ASTRAZENECA-2014SE04126

PATIENT
  Age: 58 Year
  Sex: Female

DRUGS (2)
  1. LIDOCAINE [Suspect]
     Route: 065
  2. DEXTROSE [Concomitant]

REACTIONS (3)
  - Grand mal convulsion [Unknown]
  - Cardio-respiratory arrest [Unknown]
  - Drug dispensing error [Unknown]
